FAERS Safety Report 11037518 (Version 1)
Quarter: 2015Q2

REPORT INFORMATION
  Report Type: Spontaneous
  Country: GB (occurrence: None)
  Receive Date: 20150414
  Receipt Date: 20150414
  Transmission Date: 20150821
  Serious: Yes (Life-Threatening)
  Sender: FDA-Public Use
  Company Number: 20151076

PATIENT
  Age: 81 Year
  Sex: Male

DRUGS (3)
  1. METHOTREXATE (METHOTREXATE) [Suspect]
     Active Substance: METHOTREXATE
  2. TRIMETHOPRIM (TRIMETHOPRIM) [Suspect]
     Active Substance: TRIMETHOPRIM
  3. ALLOPURINOL (ALLOPURINOL) [Concomitant]
     Active Substance: ALLOPURINOL

REACTIONS (5)
  - Proctalgia [None]
  - Myelodysplastic syndrome [None]
  - Neutropenic sepsis [None]
  - Drug interaction [None]
  - Pancytopenia [None]
